FAERS Safety Report 5369688-5 (Version None)
Quarter: 2007Q2

REPORT INFORMATION
  Report Type: 
  Country: None (occurrence: None)
  Receive Date: 20070621
  Receipt Date: 20070606
  Transmission Date: 20071010
  Serious: Yes (Hospitalization)
  Sender: FDA-Public Use
  Company Number: 2007S1005287

PATIENT
  Age: 6 Year
  Sex: Male

DRUGS (2)
  1. MERCAPTAMINE BITARTRAT E (MERCAPTAMINE BITARTRATE) (150 MG) [Suspect]
     Indication: CYSTINOSIS
     Dosage: SEE IMAGE
     Route: 048
     Dates: start: 20010115
  2. OMEPRAZOLE [Concomitant]

REACTIONS (4)
  - DEHYDRATION [None]
  - DIARRHOEA [None]
  - GASTROENTERITIS [None]
  - OESOPHAGITIS [None]
